FAERS Safety Report 19566944 (Version 2)
Quarter: 2021Q3

REPORT INFORMATION
  Report Type: Spontaneous
  Country: PT (occurrence: PT)
  Receive Date: 20210716
  Receipt Date: 20210723
  Transmission Date: 20211014
  Serious: Yes (Hospitalization, Congenital Anomaly, Other)
  Sender: FDA-Public Use
  Company Number: PT-GLAXOSMITHKLINE-PTCH2021GSK045371

PATIENT
  Sex: Male
  Weight: 3.2 kg

DRUGS (1)
  1. DICLOFENAC [Suspect]
     Active Substance: DICLOFENAC
     Indication: BACK PAIN
     Dosage: SINGLE DOSE
     Route: 064

REACTIONS (10)
  - Ductus arteriosus premature closure [Recovered/Resolved]
  - Tricuspid valve incompetence [Unknown]
  - Foetal exposure during pregnancy [Unknown]
  - Cardiac murmur [Unknown]
  - Cyanosis central [Recovered/Resolved]
  - Atrial septal defect [Recovered/Resolved]
  - Hypoxia [Unknown]
  - Ventricular hypertrophy [Recovered/Resolved]
  - Pulmonary hypertension [Recovered/Resolved]
  - Right ventricular hypertrophy [Recovered/Resolved]
